FAERS Safety Report 20207972 (Version 1)
Quarter: 2021Q4

REPORT INFORMATION
  Report Type: Spontaneous
  Country: PT (occurrence: PT)
  Receive Date: 20211220
  Receipt Date: 20211220
  Transmission Date: 20220303
  Serious: Yes (Hospitalization)
  Sender: FDA-Public Use
  Company Number: PT-NOVARTISPH-NVSC2021PT291494

PATIENT
  Age: 39 Year
  Sex: Male

DRUGS (5)
  1. ADALIMUMAB [Suspect]
     Active Substance: ADALIMUMAB
     Indication: Ankylosing spondylitis
     Dosage: 40 MG, FORTNIGHTLY
     Route: 065
  2. SECUKINUMAB [Suspect]
     Active Substance: SECUKINUMAB
     Indication: Relapsing-remitting multiple sclerosis
     Dosage: 300 MG, QMO
     Route: 058
  3. ACEMETACIN [Concomitant]
     Active Substance: ACEMETACIN
     Indication: Ankylosing spondylitis
     Dosage: 90 MG, QD
     Route: 065
  4. ACEMETACIN [Concomitant]
     Active Substance: ACEMETACIN
     Dosage: 150 UNK
     Route: 065
  5. DIMETHYL FUMARATE [Concomitant]
     Active Substance: DIMETHYL FUMARATE
     Indication: Relapsing-remitting multiple sclerosis
     Dosage: 240 MG, QD
     Route: 065

REACTIONS (2)
  - Optic neuritis [Unknown]
  - Off label use [Unknown]
